FAERS Safety Report 7624860-6 (Version None)
Quarter: 2011Q3

REPORT INFORMATION
  Report Type: 
  Country: None (occurrence: None)
  Receive Date: 20110720
  Receipt Date: 20110711
  Transmission Date: 20111222
  Serious: No
  Sender: FDA-Public Use
  Company Number: US-B.I. PHARMACEUTICALS,INC./RIDGEFIELD-2011-BP-17423BP

PATIENT
  Sex: Male
  Weight: 64.9 kg

DRUGS (4)
  1. RAPAFLO [Concomitant]
     Route: 048
     Dates: start: 20110421, end: 20110516
  2. RAPAFLO [Concomitant]
     Indication: BENIGN PROSTATIC HYPERPLASIA
     Route: 048
     Dates: start: 20100101, end: 20110520
  3. BIAXIN [Concomitant]
     Indication: LYME DISEASE
     Dates: start: 20070101
  4. FLOMAX [Suspect]
     Indication: BENIGN PROSTATIC HYPERPLASIA

REACTIONS (3)
  - DRUG INTERACTION [None]
  - DYSPNOEA [None]
  - HYPERTENSION [None]
